FAERS Safety Report 4467680-6 (Version None)
Quarter: 2004Q4

REPORT INFORMATION
  Report Type: 
  Country: None (occurrence: None)
  Receive Date: 20041004
  Receipt Date: 20041004
  Transmission Date: 20050328
  Serious: Yes (Other)
  Sender: FDA-Public Use
  Company Number: None

PATIENT
  Sex: Female
  Weight: 133.8111 kg

DRUGS (2)
  1. PAXIL [Suspect]
     Indication: GENERALISED ANXIETY DISORDER
     Dosage: 30 MG ONCE DAILY ORAL
     Route: 048
     Dates: start: 20040107, end: 20041003
  2. PAXIL [Suspect]
     Indication: PANIC ATTACK
     Dosage: 30 MG ONCE DAILY ORAL
     Route: 048
     Dates: start: 20040107, end: 20041003

REACTIONS (5)
  - DRUG WITHDRAWAL SYNDROME [None]
  - EMOTIONAL DISORDER [None]
  - HOT FLUSH [None]
  - HYPOAESTHESIA [None]
  - PALPITATIONS [None]
